FAERS Safety Report 9674740 (Version 1)
Quarter: 2013Q4

REPORT INFORMATION
  Report Type: Report from Study
  Country: CA (occurrence: CA)
  Receive Date: 20131107
  Receipt Date: 20131107
  Transmission Date: 20140711
  Serious: Yes (Other)
  Sender: FDA-Public Use
  Company Number: CA-JNJFOC-20131019796

PATIENT
  Age: 29 Year
  Sex: Female
  Weight: 78.8 kg

DRUGS (2)
  1. REMICADE [Suspect]
     Indication: CROHN^S DISEASE
     Dosage: FOR 52 WEEKS
     Route: 042
     Dates: start: 20130809
  2. CIPRALEX [Concomitant]
     Route: 048

REACTIONS (1)
  - Ileectomy [Recovered/Resolved]
